FAERS Safety Report 24444695 (Version 2)
Quarter: 2024Q4

REPORT INFORMATION
  Report Type: Spontaneous
  Country: KR (occurrence: KR)
  Receive Date: 20241016
  Receipt Date: 20241025
  Transmission Date: 20250114
  Serious: Yes (Hospitalization, Other)
  Sender: MERCK
  Company Number: KR-009507513-2410USA003993

PATIENT
  Age: 81 Year
  Sex: Male
  Weight: 67 kg

DRUGS (11)
  1. PEMBROLIZUMAB [Suspect]
     Active Substance: PEMBROLIZUMAB
     Indication: Non-small cell lung cancer
     Dosage: 200 MILLIGRAM
     Route: 042
     Dates: start: 20240509, end: 20240621
  2. OLOMORASIB [Suspect]
     Active Substance: OLOMORASIB
     Indication: Non-small cell lung cancer
     Dosage: 100 MILLIGRAM, BID
     Route: 048
     Dates: start: 20240509, end: 20240621
  3. OLOMORASIB [Suspect]
     Active Substance: OLOMORASIB
     Dosage: UNK
     Dates: start: 20240730
  4. AVODART [Concomitant]
     Active Substance: DUTASTERIDE
     Dosage: UNK
     Dates: start: 2019
  5. MIRABEGRON [Concomitant]
     Active Substance: MIRABEGRON
     Dosage: UNK
     Dates: start: 2019
  6. HARNAL [Concomitant]
     Active Substance: TAMSULOSIN HYDROCHLORIDE
     Dosage: UNK
     Dates: start: 2019
  7. DUKARB PLUS [Concomitant]
     Dosage: UNK
     Dates: start: 2019
  8. FENTORA [Concomitant]
     Active Substance: FENTANYL CITRATE
     Dosage: UNK
     Dates: start: 20240507
  9. NALOXONE HYDROCHLORIDE\OXYCODONE HYDROCHLORIDE [Concomitant]
     Active Substance: NALOXONE HYDROCHLORIDE\OXYCODONE HYDROCHLORIDE
     Dosage: UNK
     Dates: start: 20240502
  10. NORZYME [Concomitant]
     Dosage: UNK
     Dates: start: 20240531
  11. SODIUM ALGINATE [Concomitant]
     Active Substance: SODIUM ALGINATE
     Dosage: UNK
     Dates: start: 20240531

REACTIONS (3)
  - Aspartate aminotransferase increased [Recovered/Resolved]
  - Alanine aminotransferase increased [Recovered/Resolved]
  - Immune-mediated hepatitis [Unknown]

NARRATIVE: CASE EVENT DATE: 20240621
